FAERS Safety Report 4644194-1 (Version None)
Quarter: 2005Q2

REPORT INFORMATION
  Report Type: 
  Country: None (occurrence: None)
  Receive Date: 20050425
  Receipt Date: 20050415
  Transmission Date: 20051028
  Serious: Yes (Hospitalization)
  Sender: FDA-Public Use
  Company Number: CA-AMGEN-US128042

PATIENT
  Sex: Female

DRUGS (1)
  1. NEUPOGEN [Suspect]
     Indication: BLOOD STEM CELL HARVEST

REACTIONS (3)
  - ARRHYTHMIA [None]
  - CONDITION AGGRAVATED [None]
  - RASH [None]
